FAERS Safety Report 18238490 (Version 11)
Quarter: 2023Q1

REPORT INFORMATION
  Report Type: Spontaneous
  Country: US (occurrence: US)
  Receive Date: 20200907
  Receipt Date: 20230110
  Transmission Date: 20230417
  Serious: No
  Sender: FDA-Public Use
  Company Number: US-BIOGEN-2020BI00920056

PATIENT
  Sex: Female

DRUGS (1)
  1. TYSABRI [Suspect]
     Active Substance: NATALIZUMAB
     Indication: Multiple sclerosis
     Route: 050
     Dates: start: 20120503

REACTIONS (12)
  - Stress [Not Recovered/Not Resolved]
  - Sciatica [Not Recovered/Not Resolved]
  - Balance disorder [Not Recovered/Not Resolved]
  - Muscular weakness [Not Recovered/Not Resolved]
  - Amnesia [Unknown]
  - Gait disturbance [Unknown]
  - Multiple sclerosis [Unknown]
  - Hypoacusis [Unknown]
  - Contusion [Unknown]
  - Rotator cuff syndrome [Unknown]
  - Fall [Recovered/Resolved]
  - Urinary tract infection [Not Recovered/Not Resolved]

NARRATIVE: CASE EVENT DATE: 20200101
